FAERS Safety Report 17392653 (Version 1)
Quarter: 2020Q1

REPORT INFORMATION
  Report Type: Spontaneous
  Country: DE (occurrence: DE)
  Receive Date: 20200207
  Receipt Date: 20200207
  Transmission Date: 20200409
  Serious: Yes (Hospitalization)
  Sender: FDA-Public Use
  Company Number: DE-TEVA-2020-DE-1179026

PATIENT
  Age: 68 Year
  Sex: Male

DRUGS (1)
  1. CARBAMAZEPIN-RATIOPHARM 400 MG RETARDTABLETTEN [Suspect]
     Active Substance: CARBAMAZEPINE
     Dosage: FOR OVER 20 YEARS
     Route: 048

REACTIONS (2)
  - Haematochezia [Recovering/Resolving]
  - Enteritis [Recovering/Resolving]

NARRATIVE: CASE EVENT DATE: 201911
